FAERS Safety Report 7298956-5 (Version None)
Quarter: 2011Q1

REPORT INFORMATION
  Report Type: 
  Country: None (occurrence: None)
  Receive Date: 20110217
  Receipt Date: 20110210
  Transmission Date: 20110831
  Serious: Yes (Life-Threatening)
  Sender: FDA-Public Use
  Company Number: JP-ROCHE-759971

PATIENT
  Age: 68 Year
  Sex: Male

DRUGS (3)
  1. RIVOTRIL [Suspect]
     Route: 048
     Dates: start: 20110209, end: 20110209
  2. RIVOTRIL [Suspect]
     Route: 048
     Dates: start: 20110210, end: 20110210
  3. RIVOTRIL [Suspect]
     Indication: CONVULSION
     Route: 048
     Dates: end: 20110208

REACTIONS (1)
  - RESPIRATORY ARREST [None]
